FAERS Safety Report 6918907-X (Version None)
Quarter: 2010Q3

REPORT INFORMATION
  Report Type: 
  Country: None (occurrence: None)
  Receive Date: 20100811
  Receipt Date: 20100728
  Transmission Date: 20110219
  Serious: Yes (Hospitalization)
  Sender: FDA-Public Use
  Company Number: DE-ELI_LILLY_AND_COMPANY-DE201007002464

PATIENT
  Sex: Female
  Weight: 38.6 kg

DRUGS (1)
  1. SOMATROPIN [Suspect]
     Indication: GROWTH HORMONE DEFICIENCY
     Dosage: 1.1 MG, DAILY (1/D)
     Route: 065
     Dates: start: 19990406

REACTIONS (1)
  - RATHKE'S CLEFT CYST [None]
